FAERS Safety Report 6010161-9 (Version None)
Quarter: 2008Q4

REPORT INFORMATION
  Report Type: 
  Country: None (occurrence: None)
  Receive Date: 20081218
  Receipt Date: 20081211
  Transmission Date: 20090506
  Serious: Yes (Other)
  Sender: FDA-Public Use
  Company Number: SE-BRISTOL-MYERS SQUIBB COMPANY-14441166

PATIENT
  Age: 74 Year
  Sex: Female

DRUGS (5)
  1. ORENCIA [Suspect]
     Indication: RHEUMATOID ARTHRITIS
     Route: 042
     Dates: start: 20080201, end: 20081114
  2. ZOLOFT [Concomitant]
  3. FOLACIN [Concomitant]
  4. METHOTREXATE TABS [Concomitant]
  5. ACYCLOVIR [Concomitant]

REACTIONS (2)
  - ANXIETY [None]
  - DEPRESSION [None]
